FAERS Safety Report 21361063 (Version 1)
Quarter: 2022Q3

REPORT INFORMATION
  Report Type: Spontaneous
  Country: US (occurrence: None)
  Receive Date: 20220921
  Receipt Date: 20220921
  Transmission Date: 20221027
  Serious: Yes (Hospitalization)
  Sender: FDA-Public Use
  Company Number: US-ROCHE-3182436

PATIENT
  Sex: Female

DRUGS (1)
  1. ESBRIET [Suspect]
     Active Substance: PIRFENIDONE
     Indication: Product used for unknown indication
     Route: 048

REACTIONS (5)
  - Fall [Recovered/Resolved]
  - Hip fracture [Recovered/Resolved]
  - Cerebral haemorrhage [Unknown]
  - Abnormal behaviour [Unknown]
  - Illness [Unknown]
